FAERS Safety Report 18816795 (Version 1)
Quarter: 2021Q1

REPORT INFORMATION
  Report Type: Spontaneous
  Country: US (occurrence: US)
  Receive Date: 20210201
  Receipt Date: 20210201
  Transmission Date: 20210419
  Serious: Yes (Life-Threatening, Other)
  Sender: FDA-Public Use
  Company Number: US-BECTON, DICKINSON AND COMPANY-US-BD-20-000006

PATIENT
  Sex: Female

DRUGS (1)
  1. CHLORAPREP [Suspect]
     Active Substance: CHLORHEXIDINE GLUCONATE\ISOPROPYL ALCOHOL
     Indication: INFECTION PROPHYLAXIS
     Dosage: UNKNOWN
     Route: 065

REACTIONS (11)
  - Skin irritation [Recovering/Resolving]
  - Infection susceptibility increased [Recovering/Resolving]
  - Emotional distress [Recovering/Resolving]
  - Product dose omission issue [Unknown]
  - Blister [Recovering/Resolving]
  - Pain [Recovering/Resolving]
  - Condition aggravated [Recovering/Resolving]
  - Intercepted product administration error [Unknown]
  - Dermatitis [Recovering/Resolving]
  - Fear of death [Recovering/Resolving]
  - Dermatitis allergic [Recovering/Resolving]

NARRATIVE: CASE EVENT DATE: 20200819
